FAERS Safety Report 20973256 (Version 1)
Quarter: 2022Q2

REPORT INFORMATION
  Report Type: Spontaneous
  Country: US (occurrence: US)
  Receive Date: 20220617
  Receipt Date: 20220617
  Transmission Date: 20220721
  Serious: No
  Sender: FDA-Public Use
  Company Number: US-ENDO PHARMACEUTICALS INC-2022-000278

PATIENT
  Age: 4 Year
  Sex: Female
  Weight: 28.9 kg

DRUGS (4)
  1. SUPPRELIN LA [Suspect]
     Active Substance: HISTRELIN ACETATE
     Indication: Precocious puberty
     Dosage: UNK UNKNOWN, UNKNOWN (IN LEFT ARM)
     Route: 065
     Dates: start: 20211029
  2. SUPPRELIN LA [Suspect]
     Active Substance: HISTRELIN ACETATE
     Indication: Precocious puberty
     Dosage: UNK UNKNOWN, UNKNOWN (IN LEFT ARM)
     Route: 065
     Dates: start: 20211029
  3. SUPPRELIN LA [Suspect]
     Active Substance: HISTRELIN ACETATE
     Dosage: UNK UNKNOWN, UNKNOWN
     Route: 065
     Dates: start: 2020
  4. SUPPRELIN LA [Suspect]
     Active Substance: HISTRELIN ACETATE
     Dosage: UNK UNKNOWN, UNKNOWN
     Route: 065
     Dates: start: 2020

REACTIONS (4)
  - Seroma [Not Recovered/Not Resolved]
  - Implant site infection [Not Recovered/Not Resolved]
  - Keloid scar [Not Recovered/Not Resolved]
  - Device expulsion [None]

NARRATIVE: CASE EVENT DATE: 20220106
